FAERS Safety Report 4416321-2 (Version None)
Quarter: 2004Q3

REPORT INFORMATION
  Report Type: 
  Country: None (occurrence: None)
  Receive Date: 20040803
  Receipt Date: 20040729
  Transmission Date: 20050211
  Serious: Yes (Death, Hospitalization, Other)
  Sender: FDA-Public Use
  Company Number: NSADSS2002016029

PATIENT
  Age: 62 Year
  Sex: Female
  Weight: 74.3899 kg

DRUGS (6)
  1. REMICADE [Suspect]
     Indication: RHEUMATOID ARTHRITIS
     Dosage: 4 MG/KG, 1 IN 1 AS NECESSARY, INTRAVENOUS DRIP
     Route: 041
     Dates: start: 20010516
  2. REMICADE [Suspect]
     Indication: RHEUMATOID ARTHRITIS
     Dosage: 4 MG/KG, 1 IN 1 AS NECESSARY, INTRAVENOUS DRIP
     Route: 041
     Dates: start: 20020312
  3. METHOTREXATE [Suspect]
     Indication: RHEUMATOID ARTHRITIS
     Dosage: 15 MG, ORAL
     Route: 048
     Dates: start: 20010501
  4. METHOTREXATE [Concomitant]
  5. MENEST (ESTROGENS ESTERIFIED) [Concomitant]
  6. MOTRIN [Concomitant]

REACTIONS (13)
  - ACUTE RESPIRATORY FAILURE [None]
  - ALVEOLITIS [None]
  - BRONCHIECTASIS [None]
  - BURSA DISORDER [None]
  - CHRONIC OBSTRUCTIVE AIRWAYS DISEASE [None]
  - CONDITION AGGRAVATED [None]
  - LOCALISED INFECTION [None]
  - LUNG INFILTRATION [None]
  - LYMPHADENOPATHY MEDIASTINAL [None]
  - PLEURAL EFFUSION [None]
  - PNEUMONITIS [None]
  - RHEUMATOID ARTHRITIS [None]
  - RHEUMATOID LUNG [None]
